FAERS Safety Report 10133762 (Version 1)
Quarter: 2014Q2

REPORT INFORMATION
  Report Type: Spontaneous
  Country: US (occurrence: US)
  Receive Date: 20140428
  Receipt Date: 20140428
  Transmission Date: 20141212
  Serious: Yes (Death)
  Sender: FDA-Public Use
  Company Number: PHEH2014US008294

PATIENT
  Age: 30 Year
  Sex: Male

DRUGS (1)
  1. FANAPT [Suspect]
     Dosage: UNK UKN, UNK

REACTIONS (1)
  - Cardiac disorder [Fatal]
